FAERS Safety Report 23310251 (Version 3)
Quarter: 2025Q1

REPORT INFORMATION
  Report Type: Report from Study
  Country: FR (occurrence: FR)
  Receive Date: 20231218
  Receipt Date: 20250313
  Transmission Date: 20250409
  Serious: Yes (Hospitalization, Other)
  Sender: MYLAN
  Company Number: FR-ROCHE-3463471

PATIENT
  Age: 39 Year
  Sex: Male
  Weight: 76 kg

DRUGS (30)
  1. ETOPOSIDE [Suspect]
     Active Substance: ETOPOSIDE
     Indication: Diffuse large B-cell lymphoma stage III
     Dosage: 100 MILLIGRAM/SQ. METER, Q3W,  CYCLE 1 ARM 10
     Dates: start: 20231027, end: 20231029
  2. CARBOPLATIN [Suspect]
     Active Substance: CARBOPLATIN
     Indication: Diffuse large B-cell lymphoma stage III
     Dosage: 5 AUC, QD, INFUSION
     Dates: start: 20231028, end: 20231028
  3. EPCORITAMAB [Suspect]
     Active Substance: EPCORITAMAB
     Indication: Diffuse large B-cell lymphoma stage III
     Dates: start: 20231030, end: 20231030
  4. EPCORITAMAB [Suspect]
     Active Substance: EPCORITAMAB
     Dates: start: 20231106, end: 20231106
  5. EPCORITAMAB [Suspect]
     Active Substance: EPCORITAMAB
     Dates: start: 20231113
  6. IFOSFAMIDE [Suspect]
     Active Substance: IFOSFAMIDE
     Indication: Diffuse large B-cell lymphoma stage III
     Dosage: 5000 MILLIGRAM/SQ. METER, Q3W, CYCLE 1 ARM 10, INFUSION
     Dates: start: 20231028, end: 20231029
  7. RITUXIMAB [Suspect]
     Active Substance: RITUXIMAB
     Indication: Diffuse large B-cell lymphoma stage III
     Dosage: 375 MILLIGRAM/SQ. METER, Q3W, CYCLE 1 ARM 10
     Dates: start: 20231027, end: 20231027
  8. LANSOPRAZOLE [Concomitant]
     Active Substance: LANSOPRAZOLE
     Indication: Prophylaxis
     Dosage: 30 MILLIGRAM, BID
     Dates: start: 20231023
  9. POLARAMINE [Concomitant]
     Active Substance: DEXCHLORPHENIRAMINE MALEATE
     Indication: Premedication
     Dates: start: 20231113, end: 20231113
  10. AMOROLFINE [Concomitant]
     Active Substance: AMOROLFINE
     Dosage: 5 PERCENT, QW, WEEKLY
     Dates: start: 20230909
  11. SODIUM BICARBONATE [Concomitant]
     Active Substance: SODIUM BICARBONATE
     Indication: Prophylaxis
     Dosage: 1.4 PERCENT, QD, UNK, ONGOING, 1.4 PERCENT, MOTHWAS AFTER EVERY MEAL
     Dates: start: 20231027
  12. BISOPROLOL [Concomitant]
     Active Substance: BISOPROLOL
     Dosage: 1.25 MILLIGRAM, QD
     Dates: start: 20230218
  13. ONDANSETRON [Concomitant]
     Active Substance: ONDANSETRON
     Indication: Prophylaxis
     Dosage: 8 MILLIGRAM, BID
     Dates: start: 20231027, end: 20231029
  14. BACTRIM [Concomitant]
     Active Substance: SULFAMETHOXAZOLE\TRIMETHOPRIM
     Indication: Prophylaxis
     Dosage: 400 MILLIGRAM, QD, ONGOING
     Dates: start: 20231028
  15. CICLOPIROX [Concomitant]
     Active Substance: CICLOPIROX
     Dosage: 8 PERCENT, BIWEEKLY, ONGOING, 2 TIMES PER WEEK (BIW)
     Dates: start: 20230809
  16. ACETAMINOPHEN [Concomitant]
     Active Substance: ACETAMINOPHEN
     Indication: Premedication
     Dates: start: 20231106, end: 20231113
  17. ACETAMINOPHEN [Concomitant]
     Active Substance: ACETAMINOPHEN
     Indication: Erythema
     Dates: start: 20231114, end: 20231115
  18. FOLIC ACID [Concomitant]
     Active Substance: FOLIC ACID
     Indication: Anaemia
     Dosage: 5 MILLIGRAM, QD, ONGOING
     Dates: start: 20231026
  19. VALACYCLOVIR HYDROCHLORIDE [Concomitant]
     Active Substance: VALACYCLOVIR HYDROCHLORIDE
     Indication: Prophylaxis
     Dosage: 500 MILLIGRAM, QD
     Dates: start: 20231028
  20. PREDNISONE [Concomitant]
     Active Substance: PREDNISONE
     Dosage: 60 MILLIGRAM, QD
     Dates: start: 20231020, end: 20231026
  21. PREDNISONE [Concomitant]
     Active Substance: PREDNISONE
     Dosage: 80 MILLIGRAM, QD
     Dates: start: 20231028, end: 20231029
  22. PREDNISONE [Concomitant]
     Active Substance: PREDNISONE
     Dosage: 100 MILLIGRAM, QD
     Dates: start: 20231031, end: 20231102
  23. AZITHROMYCIN [Concomitant]
     Active Substance: AZITHROMYCIN
     Indication: Abdominal pain
     Dosage: 500 MILLIGRAM, QD
     Dates: start: 20231119, end: 20231120
  24. ACUPAN [Concomitant]
     Active Substance: NEFOPAM HYDROCHLORIDE
     Indication: Phlebitis
     Dates: start: 20231114, end: 20231114
  25. FILGRASTIM [Concomitant]
     Active Substance: FILGRASTIM
     Indication: Prophylaxis
     Dosage: 30 MILLION INTERNATIONAL UNIT, QD
     Dates: start: 20231101, end: 20231105
  26. METRONIDAZOLE [Concomitant]
     Active Substance: METRONIDAZOLE
     Indication: Abdominal pain
     Dosage: 500 MILLIGRAM, TID
     Dates: start: 20231119, end: 20231120
  27. PIPERACILLIN SODIUM\TAZOBACTAM SODIUM [Concomitant]
     Active Substance: PIPERACILLIN SODIUM\TAZOBACTAM SODIUM
     Indication: Abdominal pain
     Dosage: 4 GRAM, QID
     Dates: start: 20231120, end: 20231121
  28. PRIMPERAN [Concomitant]
     Active Substance: METOCLOPRAMIDE HYDROCHLORIDE
     Dates: start: 20231114, end: 20231114
  29. SOLU-MEDROL [Concomitant]
     Active Substance: METHYLPREDNISOLONE SODIUM SUCCINATE
     Dates: start: 20231027, end: 20231027
  30. PREDNISONE [Concomitant]
     Active Substance: PREDNISONE
     Dates: start: 20231030, end: 20231030

REACTIONS (4)
  - Cytokine release syndrome [Recovered/Resolved]
  - Superficial vein thrombosis [Not Recovered/Not Resolved]
  - Erythema [Recovered/Resolved]
  - Pyrexia [Not Recovered/Not Resolved]

NARRATIVE: CASE EVENT DATE: 20231114
